FAERS Safety Report 17446443 (Version 1)
Quarter: 2020Q1

REPORT INFORMATION
  Report Type: Spontaneous
  Country: US (occurrence: US)
  Receive Date: 20200221
  Receipt Date: 20200221
  Transmission Date: 20200409
  Serious: No
  Sender: FDA-Public Use
  Company Number: US-BRACCO-2019US02978

PATIENT
  Age: 51 Year
  Sex: Male

DRUGS (1)
  1. ISOVUE 370 [Suspect]
     Active Substance: IOPAMIDOL
     Indication: DIAGNOSTIC PROCEDURE
     Dosage: 66.4 ML, SINGLE
     Dates: start: 20190611, end: 20190611

REACTIONS (1)
  - Dysphagia [Recovered/Resolved]

NARRATIVE: CASE EVENT DATE: 20190611
